FAERS Safety Report 5351515-3 (Version None)
Quarter: 2007Q2

REPORT INFORMATION
  Report Type: 
  Country: None (occurrence: None)
  Receive Date: 20070608
  Receipt Date: 20070525
  Transmission Date: 20071010
  Serious: Yes (Death)
  Sender: FDA-Public Use
  Company Number: FI-GENENTECH-241969

PATIENT
  Sex: Female

DRUGS (4)
  1. HERCEPTIN [Suspect]
     Indication: BREAST CANCER
     Dosage: 340 MG, Q3W
     Dates: start: 20070303
  2. HERCEPTIN [Suspect]
     Dosage: 125 MG, 1/WEEK
     Dates: start: 20060303
  3. HERCEPTIN [Suspect]
     Dosage: 250 MG, 1/WEEK
     Dates: start: 20060303
  4. GEMZAR [Concomitant]
     Indication: BREAST CANCER
     Dates: start: 20060804

REACTIONS (1)
  - ARRHYTHMIA [None]
